FAERS Safety Report 16312559 (Version 1)
Quarter: 2019Q2

REPORT INFORMATION
  Report Type: Spontaneous
  Country: JP (occurrence: JP)
  Receive Date: 20190515
  Receipt Date: 20190515
  Transmission Date: 20190711
  Serious: Yes (Hospitalization)
  Sender: FDA-Public Use
  Company Number: JP-SAKK-2019SA129819AA

PATIENT

DRUGS (1)
  1. DUPIXENT [Suspect]
     Active Substance: DUPILUMAB
     Indication: ASTHMA
     Dosage: DAILY DOSAGE: 300
     Route: 058
     Dates: start: 20190425, end: 20190425

REACTIONS (1)
  - Hyperthermia [Recovering/Resolving]

NARRATIVE: CASE EVENT DATE: 20190427
